FAERS Safety Report 5588723-2 (Version None)
Quarter: 2008Q1

REPORT INFORMATION
  Report Type: 
  Country: None (occurrence: None)
  Receive Date: 20080111
  Receipt Date: 20080103
  Transmission Date: 20080703
  Serious: Yes (Other)
  Sender: FDA-Public Use
  Company Number: B0360420A

PATIENT
  Sex: Female

DRUGS (5)
  1. PAROXETINE HYDROCHLORIDE [Suspect]
     Indication: DEPRESSION
     Route: 065
     Dates: start: 19960418
  2. DOTHIEPIN HYDROCHLORIDE [Concomitant]
     Route: 065
     Dates: start: 19951207
  3. DIAZEPAM [Concomitant]
     Route: 065
     Dates: start: 19951211
  4. IMIPRAMINE [Concomitant]
     Route: 065
     Dates: start: 19960318
  5. AMITRIPTYLINE HCL [Concomitant]
     Route: 065
     Dates: start: 20010201

REACTIONS (13)
  - AGITATION [None]
  - BALANCE DISORDER [None]
  - CONFUSIONAL STATE [None]
  - DEPRESSED MOOD [None]
  - DRUG WITHDRAWAL SYNDROME [None]
  - HEADACHE [None]
  - NAUSEA [None]
  - NIGHTMARE [None]
  - PARAESTHESIA [None]
  - SLEEP DISORDER [None]
  - SUICIDAL IDEATION [None]
  - THINKING ABNORMAL [None]
  - TREMOR [None]
